FAERS Safety Report 6980852-1 (Version None)
Quarter: 2010Q3

REPORT INFORMATION
  Report Type: 
  Country: None (occurrence: None)
  Receive Date: 20100914
  Receipt Date: 20100908
  Transmission Date: 20110219
  Serious: Yes (Hospitalization, Other)
  Sender: FDA-Public Use
  Company Number: MX-ABBOTT-09P-107-0590225-00

PATIENT
  Sex: Female
  Weight: 47 kg

DRUGS (4)
  1. HUMIRA [Suspect]
     Indication: COLITIS ULCERATIVE
     Route: 058
     Dates: start: 20090323, end: 20090712
  2. MESALASINA [Concomitant]
     Indication: PRODUCT USED FOR UNKNOWN INDICATION
     Dosage: 9 TABLETS PER DAY
  3. MESALAMINE [Concomitant]
     Indication: COLITIS ULCERATIVE
     Dosage: 1000 MG EVERY 8 HOURS, 2 CAPS EVERY 8 HOURS
     Route: 048
     Dates: start: 20000101
  4. CORTIZONE [Concomitant]
     Indication: HAEMORRHAGE
     Route: 048

REACTIONS (5)
  - ANAEMIA [None]
  - DIARRHOEA [None]
  - ERYTHEMA [None]
  - ERYTHEMA NODOSUM [None]
  - WEIGHT DECREASED [None]
